FAERS Safety Report 10471971 (Version 1)
Quarter: 2014Q3

REPORT INFORMATION
  Report Type: Spontaneous
  Country: US (occurrence: US)
  Receive Date: 20140924
  Receipt Date: 20140924
  Transmission Date: 20150326
  Serious: No
  Sender: FDA-Public Use
  Company Number: US-009507513-1409USA010189

PATIENT
  Sex: Female

DRUGS (2)
  1. SINEMET [Suspect]
     Active Substance: CARBIDOPA\LEVODOPA
     Dosage: 25-100 TABLET
  2. SINEMET CR [Suspect]
     Active Substance: CARBIDOPA\LEVODOPA

REACTIONS (3)
  - Product name confusion [Unknown]
  - Intercepted medication error [Unknown]
  - No adverse event [Unknown]
